FAERS Safety Report 9701166 (Version 2)
Quarter: 2015Q3

REPORT INFORMATION
  Report Type: Spontaneous
  Country: US (occurrence: US)
  Receive Date: 20131121
  Receipt Date: 20150803
  Transmission Date: 20151125
  Serious: No
  Sender: FDA-Public Use
  Company Number: US-GILEAD-2008-0015846

PATIENT
  Age: 75 Year
  Sex: Male
  Weight: 109.77 kg

DRUGS (9)
  1. COZAAR [Concomitant]
     Active Substance: LOSARTAN POTASSIUM
     Dosage: UD
     Route: 048
  2. TRIAMTERENE. [Concomitant]
     Active Substance: TRIAMTERENE
     Dosage: UD
     Route: 048
  3. LIPITOR [Concomitant]
     Active Substance: ATORVASTATIN CALCIUM
     Dosage: UD
     Route: 048
  4. LEVOTHYROXINE. [Concomitant]
     Active Substance: LEVOTHYROXINE
     Dosage: UD
     Route: 048
  5. COUMADIN [Concomitant]
     Active Substance: WARFARIN SODIUM
     Dosage: UD
     Route: 048
  6. METFORMIN [Concomitant]
     Active Substance: METFORMIN HYDROCHLORIDE
     Dosage: UD
     Route: 048
  7. LETAIRIS [Suspect]
     Active Substance: AMBRISENTAN
     Indication: PULMONARY ARTERIAL HYPERTENSION
     Route: 048
     Dates: start: 20080222
  8. ATENOLOL. [Concomitant]
     Active Substance: ATENOLOL
     Dosage: UD
     Route: 048
  9. TYLENOL EX-STRENGTH [Concomitant]
     Dosage: UD
     Route: 048

REACTIONS (2)
  - Peripheral swelling [Unknown]
  - Headache [Unknown]
